FAERS Safety Report 8675039 (Version 2)
Quarter: 2012Q4

REPORT INFORMATION
  Report Type: 
  Country: BR (occurrence: BR)
  Receive Date: 20120720
  Receipt Date: 20120904
  Transmission Date: 20130627
  Serious: Yes (Hospitalization, Disabling, Other)
  Sender: FDA-Public Use
  Company Number: BR-SANOFI-AVENTIS-2012SA050357

PATIENT
  Age: 60 Year
  Sex: Female
  Weight: 59 kg

DRUGS (9)
  1. LANTUS [Suspect]
     Indication: DIABETES
     Dosage: in the morning in fasting
     Route: 058
     Dates: start: 2004
  2. UNSPECIFIED INGREDIENT [Suspect]
     Indication: DEVICE THERAPY
     Dates: start: 2004
  3. CALCIUM [Concomitant]
     Indication: OSTEOPOROSIS
     Dates: start: 1997
  4. ALENDRONATE [Concomitant]
     Indication: OSTEOPOROSIS
     Dates: start: 1997
  5. ROSUVASTATIN CALCIUM [Concomitant]
     Dates: start: 2010
  6. NEURONTIN [Concomitant]
     Indication: DIABETIC NEUROPATHY
     Dates: start: 2008
  7. NOVORAPID [Concomitant]
     Indication: DIABETES
  8. OMEPRAZOLE [Concomitant]
     Indication: GASTRIC DISORDER
     Dates: start: 2009
  9. ASPIRIN [Concomitant]
     Dates: start: 2009

REACTIONS (8)
  - Cerebrovascular accident [Recovered/Resolved]
  - Carotid artery occlusion [Recovered/Resolved]
  - Eye haemorrhage [Recovering/Resolving]
  - Thrombosis [Recovered/Resolved with Sequelae]
  - Cataract operation [Recovered/Resolved]
  - Visual acuity reduced [Not Recovered/Not Resolved]
  - Vision blurred [Not Recovered/Not Resolved]
  - Hypoglycaemia [Not Recovered/Not Resolved]
